FAERS Safety Report 8531208-1 (Version None)
Quarter: 2012Q3

REPORT INFORMATION
  Report Type: 
  Country: None (occurrence: None)
  Receive Date: 20120723
  Receipt Date: 20120709
  Transmission Date: 20120928
  Serious: Yes (Death, Other)
  Sender: FDA-Public Use
  Company Number: NL-ELI_LILLY_AND_COMPANY-NL201207001083

PATIENT
  Sex: Female

DRUGS (4)
  1. CYMBALTA [Suspect]
     Dosage: 30 MG, QD
     Dates: start: 20120327
  2. ZYPREXA [Suspect]
     Dosage: 2.5 MG, BID
     Route: 065
     Dates: start: 20111107
  3. CYMBALTA [Suspect]
     Indication: DEPRESSION
     Dosage: 15 MG, QD
     Route: 065
     Dates: start: 20120323, end: 20120326
  4. VENLAFAXINE [Concomitant]
     Indication: DEPRESSION
     Dosage: 37.5 MG, UNKNOWN
     Dates: start: 20120315, end: 20120323

REACTIONS (2)
  - SUICIDAL IDEATION [None]
  - COMPLETED SUICIDE [None]
